FAERS Safety Report 23606664 (Version 3)
Quarter: 2024Q2

REPORT INFORMATION
  Report Type: Spontaneous
  Country: FR (occurrence: FR)
  Receive Date: 20240307
  Receipt Date: 20240506
  Transmission Date: 20240716
  Serious: Yes (Hospitalization, Other)
  Sender: FDA-Public Use
  Company Number: None

PATIENT
  Age: 64 Year
  Sex: Female
  Weight: 77 kg

DRUGS (2)
  1. ABILIFY MAINTENA [Suspect]
     Active Substance: ARIPIPRAZOLE
     Indication: Mental disorder
     Dosage: 400 MG, QM
     Route: 058
     Dates: start: 20230801, end: 20231121
  2. TRIHEXYPHENIDYL HYDROCHLORIDE [Suspect]
     Active Substance: TRIHEXYPHENIDYL HYDROCHLORIDE
     Indication: Parkinsonism
     Dosage: 1 DF, QD
     Route: 048
     Dates: start: 20230801

REACTIONS (4)
  - Cerebral venous thrombosis [Recovered/Resolved]
  - Pulmonary embolism [Recovered/Resolved]
  - Product use in unapproved indication [Unknown]
  - Incorrect route of product administration [Unknown]

NARRATIVE: CASE EVENT DATE: 20230801
